FAERS Safety Report 10101237 (Version 2)
Quarter: 2014Q2

REPORT INFORMATION
  Report Type: Spontaneous
  Country: US (occurrence: US)
  Receive Date: 20140424
  Receipt Date: 20140528
  Transmission Date: 20141212
  Serious: No
  Sender: FDA-Public Use
  Company Number: US-B.I. PHARMACEUTICALS,INC./RIDGEFIELD-2014-BI-17351BP

PATIENT
  Age: 58 Year
  Sex: Female
  Weight: 52 kg

DRUGS (2)
  1. MICARDIS HCT TABLETS [Suspect]
     Indication: HYPERTENSION
     Dosage: STRENGTH AND DAILY DOSE:: 80 MG / 25 MG
     Route: 048
     Dates: start: 2012
  2. ASPIRIN [Concomitant]
     Indication: PAIN
     Route: 048

REACTIONS (2)
  - Joint effusion [Not Recovered/Not Resolved]
  - Chest pain [Recovered/Resolved]
